FAERS Safety Report 10448112 (Version 2)
Quarter: 2014Q4

REPORT INFORMATION
  Report Type: Spontaneous
  Country: JP (occurrence: JP)
  Receive Date: 20140911
  Receipt Date: 20141001
  Transmission Date: 20150528
  Serious: Yes (Other)
  Sender: FDA-Public Use
  Company Number: JP-009507513-1409JPN003314

PATIENT
  Age: 37 Year
  Sex: Female

DRUGS (12)
  1. CISPLATIN. [Suspect]
     Active Substance: CISPLATIN
     Indication: UTERINE CANCER
     Dosage: 50 MG/M2, TOTAL DALIY DOSE 85MG
     Route: 048
  2. GLUTATHIONE [Concomitant]
     Active Substance: GLUTATHIONE
  3. FOSFOMYCIN SODIUM [Concomitant]
     Active Substance: FOSFOMYCIN SODIUM
  4. SODIUM CARBONATE [Suspect]
     Active Substance: SODIUM CARBONATE
     Route: 042
  5. HEPARIN SODIUM. [Concomitant]
     Active Substance: HEPARIN SODIUM
  6. EMEND [Suspect]
     Active Substance: APREPITANT
     Indication: PROPHYLAXIS OF NAUSEA AND VOMITING
     Route: 048
  7. GRANISETRON HYDROCHLORIDE. [Concomitant]
     Active Substance: GRANISETRON HYDROCHLORIDE
  8. DOXORUBICIN [Suspect]
     Active Substance: DOXORUBICIN
     Indication: UTERINE CANCER
     Dosage: 60MG/M2, DAILY DOSE 100 MG
     Route: 042
  9. FAMOTIDINE. [Suspect]
     Active Substance: FAMOTIDINE
     Route: 042
  10. AMMONIUM GLYCYRRHIZATE (+) CYSTEINE (+) GLYCINE [Concomitant]
     Dosage: UNK
  11. METHYLPREDNISOLONE SODIUM SUCCINATE. [Concomitant]
     Active Substance: METHYLPREDNISOLONE SODIUM SUCCINATE
  12. METOCLOPRAMIDE. [Concomitant]
     Active Substance: METOCLOPRAMIDE

REACTIONS (1)
  - Sinus node dysfunction [Recovered/Resolved]
